FAERS Safety Report 8547840-5 (Version None)
Quarter: 2012Q3

REPORT INFORMATION
  Report Type: 
  Country: None (occurrence: None)
  Receive Date: 20120727
  Receipt Date: 20120307
  Transmission Date: 20120928
  Serious: Yes (Other)
  Sender: FDA-Public Use
  Company Number: US-ASTRAZENECA-2012SE16053

PATIENT
  Age: 33 Year
  Sex: Male

DRUGS (4)
  1. SEROQUEL [Suspect]
     Indication: ANXIETY
     Route: 048
  2. KEPPRA [Concomitant]
  3. LAMICTAL [Concomitant]
  4. CELEXA [Concomitant]
     Indication: ANXIETY

REACTIONS (1)
  - GRAND MAL CONVULSION [None]
